FAERS Safety Report 5139954-7 (Version None)
Quarter: 2006Q4

REPORT INFORMATION
  Report Type: 
  Country: None (occurrence: None)
  Receive Date: 20061031
  Receipt Date: 20061020
  Transmission Date: 20070319
  Serious: Yes (Hospitalization)
  Sender: FDA-Public Use
  Company Number: JP-JNJFOC-20061004936

PATIENT
  Age: 48 Year
  Sex: Male

DRUGS (1)
  1. ITRIZOLE [Suspect]
     Indication: NAIL TINEA
     Route: 048
     Dates: start: 20061006, end: 20061014

REACTIONS (2)
  - HAEMATEMESIS [None]
  - MELAENA [None]
